FAERS Safety Report 4884625-5 (Version None)
Quarter: 2005Q4

REPORT INFORMATION
  Report Type: 
  Country: None (occurrence: None)
  Receive Date: 20051201
  Receipt Date: 20050921
  Transmission Date: 20060501
  Serious: No
  Sender: FDA-Public Use
  Company Number: 2005PV002356

PATIENT
  Age: 66 Year
  Sex: Female
  Weight: 104.7809 kg

DRUGS (11)
  1. BYETTA [Suspect]
     Indication: DIABETES MELLITUS NON-INSULIN-DEPENDENT
     Dosage: 5 MCG, BID, SC
     Route: 058
     Dates: start: 20050825, end: 20050901
  2. LANTUS [Concomitant]
  3. NOVOLOG [Concomitant]
  4. NEURONTIN [Concomitant]
  5. DIOVAN HCT [Concomitant]
  6. GEMFIBROZIL [Concomitant]
  7. NASORIL NS [Concomitant]
  8. ALLEGRA [Concomitant]
  9. VERAPAMIL [Concomitant]
  10. LIPITOR [Concomitant]
  11. GLUCOPHAGE [Concomitant]

REACTIONS (7)
  - COUGH [None]
  - DIZZINESS [None]
  - GASTROOESOPHAGEAL REFLUX DISEASE [None]
  - HYPOGLYCAEMIA [None]
  - INJECTION SITE HAEMORRHAGE [None]
  - NAUSEA [None]
  - RESPIRATORY TRACT INFECTION [None]
